FAERS Safety Report 7190550-X (Version None)
Quarter: 2010Q4

REPORT INFORMATION
  Report Type: 
  Country: None (occurrence: None)
  Receive Date: 20101221
  Receipt Date: 20101221
  Transmission Date: 20110411
  Serious: Yes (Hospitalization)
  Sender: FDA-Public Use
  Company Number: None

PATIENT
  Age: 21 Year
  Sex: Male
  Weight: 72.5755 kg

DRUGS (1)
  1. SYMBICORT [Suspect]
     Indication: ASTHMA
     Dates: start: 20100905, end: 20101106

REACTIONS (7)
  - ATRIAL FIBRILLATION [None]
  - BRADYCARDIA [None]
  - COSTOCHONDRITIS [None]
  - HEART RATE IRREGULAR [None]
  - PALPITATIONS [None]
  - SYNCOPE [None]
  - TACHYCARDIA [None]
